FAERS Safety Report 17938589 (Version 3)
Quarter: 2025Q3

REPORT INFORMATION
  Report Type: Spontaneous
  Country: EU (occurrence: EU)
  Receive Date: 20200625
  Receipt Date: 20250719
  Transmission Date: 20251020
  Serious: Yes (Hospitalization, Other)
  Sender: AUROBINDO
  Company Number: EU-EMA-DD-20200615-GONUGUNTLA_N1-141313

PATIENT
  Age: 73 Year
  Sex: Female

DRUGS (6)
  1. HYDROCHLOROTHIAZIDE [Suspect]
     Active Substance: HYDROCHLOROTHIAZIDE
     Indication: Hypertension
     Route: 065
  2. IBUPROFEN [Suspect]
     Active Substance: IBUPROFEN
     Indication: Osteoarthritis
     Route: 065
  3. LOSARTAN [Concomitant]
     Active Substance: LOSARTAN
     Indication: Hypertension
     Route: 065
  4. NIMESULIDE [Concomitant]
     Active Substance: NIMESULIDE
     Indication: Osteoarthritis
     Route: 065
  5. PAROXETINE [Concomitant]
     Active Substance: PAROXETINE
     Indication: Product used for unknown indication
     Route: 065
  6. AMISULPRIDE [Concomitant]
     Active Substance: AMISULPRIDE
     Indication: Product used for unknown indication
     Route: 065

REACTIONS (12)
  - Tubulointerstitial nephritis [Recovered/Resolved]
  - Leukoencephalopathy [Unknown]
  - Renal failure [Recovered/Resolved]
  - Hypoxic-ischaemic encephalopathy [Unknown]
  - Normochromic normocytic anaemia [Unknown]
  - Decreased appetite [Unknown]
  - Proteinuria [Unknown]
  - Nausea [Unknown]
  - Morning sickness [Unknown]
  - Asthenia [Unknown]
  - Weight decreased [Unknown]
  - Somnolence [Unknown]
